FAERS Safety Report 6490995-7 (Version None)
Quarter: 2009Q4

REPORT INFORMATION
  Report Type: 
  Country: None (occurrence: None)
  Receive Date: 20091211
  Receipt Date: 20091204
  Transmission Date: 20100525
  Serious: Yes (Hospitalization)
  Sender: FDA-Public Use
  Company Number: JP-BAYER-200914585BYL

PATIENT
  Age: 67 Year
  Sex: Male
  Weight: 69 kg

DRUGS (5)
  1. NEXAVAR [Suspect]
     Indication: RENAL CELL CARCINOMA
     Dosage: UNIT DOSE: 200 MG
     Route: 048
     Dates: start: 20090818, end: 20091022
  2. NEXAVAR [Suspect]
     Dosage: UNIT DOSE: 200 MG
     Route: 048
     Dates: start: 20091022, end: 20091119
  3. CARDENALIN [Concomitant]
     Route: 048
     Dates: start: 20090909, end: 20090923
  4. OLMETEC [Concomitant]
     Route: 048
     Dates: start: 20090924
  5. GASTER [Concomitant]
     Route: 048
     Dates: start: 20091127

REACTIONS (5)
  - HEPATIC FUNCTION ABNORMAL [None]
  - HYPERTENSION [None]
  - LIPASE INCREASED [None]
  - PROTEINURIA [None]
  - RASH [None]
